FAERS Safety Report 10149458 (Version 2)
Quarter: 2014Q2

REPORT INFORMATION
  Report Type: Spontaneous
  Country: US (occurrence: None)
  Receive Date: 20140430
  Receipt Date: 20140620
  Transmission Date: 20141212
  Serious: Yes (Other)
  Sender: FDA-Public Use
  Company Number: 2014-001137

PATIENT
  Age: 25 Year
  Sex: Female
  Weight: 50.3 kg

DRUGS (1)
  1. WYMZYA FE [Suspect]
     Indication: CONTRACEPTION
     Route: 048
     Dates: start: 20140226, end: 20140420

REACTIONS (5)
  - Lupus-like syndrome [None]
  - Fluid retention [None]
  - Local swelling [None]
  - Fatigue [None]
  - Skin disorder [None]
